FAERS Safety Report 8151560-9 (Version None)
Quarter: 2012Q1

REPORT INFORMATION
  Report Type: 
  Country: None (occurrence: None)
  Receive Date: 20120220
  Receipt Date: 20120206
  Transmission Date: 20120608
  Serious: Yes (Hospitalization, Disabling)
  Sender: FDA-Public Use
  Company Number: ES-ROCHE-770720

PATIENT
  Sex: Female

DRUGS (14)
  1. LENALIDOMIDE [Suspect]
     Indication: CHRONIC LYMPHOCYTIC LEUKAEMIA
     Dosage: FORM: UNKNOWN
     Route: 048
     Dates: start: 20100726, end: 20110125
  2. ACIDO FOLICO [Concomitant]
     Indication: PROPHYLAXIS
     Route: 048
  3. MABTHERA [Suspect]
     Indication: CHRONIC LYMPHOCYTIC LEUKAEMIA
     Dosage: FORM: UNKNOWN
     Route: 042
     Dates: start: 20100726, end: 20101228
  4. OMEPRAZOLE [Concomitant]
     Indication: PROPHYLAXIS
     Route: 048
  5. PREDNISONE [Concomitant]
     Indication: HAEMOLYTIC ANAEMIA
  6. SERTRALINE HYDROCHLORIDE [Concomitant]
     Dates: start: 20090916
  7. MEFLOQUINE HYDROCHLORIDE [Concomitant]
  8. PREDNISONE [Concomitant]
     Indication: PROPHYLAXIS
     Route: 048
  9. COTRIM [Concomitant]
     Indication: PROPHYLAXIS
     Route: 048
  10. SERTRALINE HYDROCHLORIDE [Concomitant]
     Indication: DEPRESSION
     Route: 048
  11. ALLOPURINOL [Concomitant]
     Indication: TUMOUR LYSIS SYNDROME
     Route: 048
  12. SEPTRA [Concomitant]
     Indication: PROPHYLAXIS
     Dosage: 1600/370 MG DAILY.
     Route: 048
  13. HYDROSIL [Concomitant]
     Indication: PROPHYLAXIS
     Dosage: REPORTED DOSE: 0.5/250/250 MG
     Route: 048
  14. ASPIRIN [Concomitant]
     Indication: THROMBOSIS PROPHYLAXIS
     Route: 048

REACTIONS (1)
  - PROGRESSIVE MULTIFOCAL LEUKOENCEPHALOPATHY [None]
